FAERS Safety Report 6537513-2 (Version None)
Quarter: 2010Q1

REPORT INFORMATION
  Report Type: 
  Country: None (occurrence: None)
  Receive Date: 20100114
  Receipt Date: 20091116
  Transmission Date: 20100710
  Serious: Yes (Life-Threatening)
  Sender: FDA-Public Use
  Company Number: PHHY2009GB50283

PATIENT
  Age: 82 Year
  Sex: Female

DRUGS (5)
  1. LUCENTIS (NVO) [Suspect]
     Indication: MACULAR DEGENERATION
     Dosage: UNK
     Dates: start: 20061130
  2. CARBAMAZEPINE [Suspect]
     Dosage: UNK
  3. ATENOLOL [Suspect]
     Dosage: UNK
  4. DESMOPRESSIN [Suspect]
     Dosage: UNK
  5. LANSOPRAZOLE [Suspect]

REACTIONS (1)
  - MYOCARDIAL INFARCTION [None]
